FAERS Safety Report 4295354-3 (Version None)
Quarter: 2004Q1

REPORT INFORMATION
  Report Type: 
  Country: None (occurrence: None)
  Receive Date: 20040216
  Receipt Date: 20030624
  Transmission Date: 20041129
  Serious: No
  Sender: FDA-Public Use
  Company Number: US-GLAXOSMITHKLINE-A0413765A

PATIENT
  Age: 42 Year
  Sex: Male

DRUGS (3)
  1. LAMICTAL [Suspect]
     Indication: BIPOLAR DISORDER
     Dosage: 75MG PER DAY
     Route: 048
     Dates: start: 20030603, end: 20030615
  2. ACCUPRIL [Concomitant]
     Dosage: 10MG UNKNOWN
     Route: 065
  3. ALCOHOL [Concomitant]

REACTIONS (1)
  - RASH GENERALISED [None]
